FAERS Safety Report 14691325 (Version 1)
Quarter: 2018Q1

REPORT INFORMATION
  Report Type: Spontaneous
  Country: US (occurrence: US)
  Receive Date: 20180327
  Receipt Date: 20180327
  Transmission Date: 20180509
  Serious: No
  Sender: FDA-Public Use
  Company Number: None

PATIENT
  Age: 48 Year
  Sex: Female

DRUGS (1)
  1. COPAXONE [Suspect]
     Active Substance: GLATIRAMER ACETATE
     Indication: MULTIPLE SCLEROSIS
     Route: 058
     Dates: start: 20180227, end: 20180309

REACTIONS (5)
  - Influenza like illness [None]
  - Injection site reaction [None]
  - Dyspnoea [None]
  - Pyrexia [None]
  - Facial pain [None]

NARRATIVE: CASE EVENT DATE: 20180309
